FAERS Safety Report 10262963 (Version 2)
Quarter: 2014Q2

REPORT INFORMATION
  Report Type: Report from Study
  Country: US (occurrence: US)
  Receive Date: 20140626
  Receipt Date: 20140626
  Transmission Date: 20141212
  Serious: Yes (Life-Threatening, Other)
  Sender: FDA-Public Use
  Company Number: US-MYLANLABS-2013S1024230

PATIENT
  Age: 71 Year
  Sex: Male
  Weight: 87.54 kg

DRUGS (8)
  1. CLOZAPINE TABLETS [Suspect]
     Indication: SCHIZOPHRENIA
     Route: 048
     Dates: start: 20131010, end: 20131027
  2. CLOZAPINE TABLETS [Suspect]
     Indication: PSYCHOTIC DISORDER
     Route: 048
     Dates: start: 20131010, end: 20131027
  3. CARBIDOPA/LEVODOPA [Concomitant]
  4. RIVASTIGMINE [Concomitant]
  5. VENLAFAXINE [Concomitant]
  6. ASPIRIN [Concomitant]
  7. CARDIZEM CD [Concomitant]
     Dates: start: 20131003
  8. XARELTO [Concomitant]
     Dates: start: 20130928

REACTIONS (4)
  - Agranulocytosis [Recovered/Resolved]
  - Granulocytopenia [Recovered/Resolved]
  - Leukopenia [Recovered/Resolved]
  - Pneumonia [Recovered/Resolved]
